FAERS Safety Report 10994327 (Version 1)
Quarter: 2015Q2

REPORT INFORMATION
  Report Type: Spontaneous
  Country: BR (occurrence: BR)
  Receive Date: 20150407
  Receipt Date: 20150407
  Transmission Date: 20150821
  Serious: Yes (Death, Hospitalization, Other)
  Sender: FDA-Public Use
  Company Number: BR-009507513-1504BRA001678

PATIENT
  Age: 67 Year
  Sex: Male

DRUGS (6)
  1. XALKORI [Concomitant]
     Active Substance: CRIZOTINIB
     Indication: LUNG NEOPLASM MALIGNANT
     Dosage: UNK
     Dates: start: 201205
  2. IRON (UNSPECIFIED) [Concomitant]
     Active Substance: IRON
     Dosage: UNK
  3. METICORTEN [Suspect]
     Active Substance: PREDNISONE
     Indication: PNEUMONITIS
     Dosage: UNK
     Route: 048
     Dates: start: 20130830, end: 20130924
  4. METICORTEN [Suspect]
     Active Substance: PREDNISONE
     Dosage: UNK
     Route: 048
     Dates: start: 201206, end: 201209
  5. DECA-DURABOLIN [Suspect]
     Active Substance: NANDROLONE DECANOATE
     Indication: BLOOD TESTOSTERONE DECREASED
     Dosage: UNK
  6. FOLIC ACID. [Concomitant]
     Active Substance: FOLIC ACID
     Dosage: UNK

REACTIONS (21)
  - Herpes virus infection [Unknown]
  - Brain neoplasm [Unknown]
  - Skin disorder [Unknown]
  - Nausea [Recovered/Resolved]
  - Confusional state [Unknown]
  - Vomiting [Recovered/Resolved]
  - Head injury [Recovered/Resolved]
  - Laziness [Recovered/Resolved]
  - Hypotension [Recovered/Resolved]
  - Pneumonitis [Unknown]
  - Dementia [Unknown]
  - Dizziness [Recovered/Resolved]
  - Pyrexia [Recovered/Resolved]
  - Encephalitis [Unknown]
  - Generalised oedema [Recovered/Resolved]
  - Fall [Recovered/Resolved]
  - Cushingoid [Recovered/Resolved]
  - Death [Fatal]
  - Wound [Unknown]
  - Rhinitis [Recovered/Resolved]
  - Asthenia [Recovered/Resolved]

NARRATIVE: CASE EVENT DATE: 201209
